FAERS Safety Report 8095366 (Version 5)
Quarter: 2013Q3

REPORT INFORMATION
  Report Type: Spontaneous
  Country: FR (occurrence: None)
  Receive Date: 20110810
  Receipt Date: 20130812
  Transmission Date: 20140515
  Serious: Yes (Hospitalization, Other)
  Sender: FDA-Public Use
  Company Number: JPI-P-002733

PATIENT
  Age: 58 Year
  Sex: Male

DRUGS (5)
  1. XYREM [Suspect]
     Indication: CATAPLEXY
     Dosage: 4.5 GM (2.5 GM, 2 IN 1 D), ORAL
     Route: 048
     Dates: start: 20071019, end: 20071031
  2. KARDEGIC [Concomitant]
  3. BISOPROLOL FUMARATE [Concomitant]
  4. ENOXAPARIN SODIUM [Concomitant]
  5. ROSUVASTATIN [Concomitant]

REACTIONS (19)
  - Terminal insomnia [None]
  - Fatigue [None]
  - Irritability [None]
  - Malaise [None]
  - Confusional state [None]
  - Agitation [None]
  - Disorientation [None]
  - Anxiety [None]
  - Somnambulism [None]
  - Hyperhidrosis [None]
  - Hallucination [None]
  - Hypnagogic hallucination [None]
  - Memory impairment [None]
  - Hot flush [None]
  - Depression [None]
  - Sleep paralysis [None]
  - Coronary artery stenosis [None]
  - Angina pectoris [None]
  - Drug ineffective [None]
